FAERS Safety Report 7864295-4 (Version None)
Quarter: 2011Q4

REPORT INFORMATION
  Report Type: 
  Country: None (occurrence: None)
  Receive Date: 20111028
  Receipt Date: 20110401
  Transmission Date: 20120403
  Serious: No
  Sender: FDA-Public Use
  Company Number: US-GLAXOSMITHKLINE-A0921886A

PATIENT
  Sex: Female

DRUGS (5)
  1. ALBUTEROL [Concomitant]
  2. OXYGEN [Concomitant]
  3. SPIRIVA [Concomitant]
  4. SEREVENT [Suspect]
     Indication: ASTHMA
     Dosage: 1PUFF TWICE PER DAY
     Route: 055
     Dates: start: 20040101
  5. METOPROLOL TARTRATE [Concomitant]

REACTIONS (3)
  - PRODUCT QUALITY ISSUE [None]
  - DYSPNOEA [None]
  - CHEST DISCOMFORT [None]
